FAERS Safety Report 18387848 (Version 1)
Quarter: 2020Q4

REPORT INFORMATION
  Report Type: Spontaneous
  Country: US (occurrence: US)
  Receive Date: 20201015
  Receipt Date: 20201015
  Transmission Date: 20210114
  Serious: No
  Sender: FDA-Public Use
  Company Number: NVSC2020US273637

PATIENT
  Sex: Male

DRUGS (6)
  1. OFEV [Suspect]
     Active Substance: NINTEDANIB
     Dosage: UNK
     Route: 065
  2. OFEV [Suspect]
     Active Substance: NINTEDANIB
     Dosage: UNK
     Route: 065
  3. OFEV [Suspect]
     Active Substance: NINTEDANIB
     Dosage: UNK
     Route: 065
  4. ZOLDRIA [Suspect]
     Active Substance: ZOLEDRONIC ACID
     Indication: PRODUCT USED FOR UNKNOWN INDICATION
     Route: 065
  5. OFEV [Suspect]
     Active Substance: NINTEDANIB
     Dosage: UNK
     Route: 065
  6. OFEV [Suspect]
     Active Substance: NINTEDANIB
     Indication: IDIOPATHIC PULMONARY FIBROSIS
     Dosage: 300 MG, (150 MG,1 IN 0.5 DAY)
     Route: 048
     Dates: start: 20190110

REACTIONS (8)
  - Nasopharyngitis [Unknown]
  - Cough [Unknown]
  - Diarrhoea [Unknown]
  - Chills [Unknown]
  - Dyspnoea exertional [Unknown]
  - Memory impairment [Unknown]
  - Pyrexia [Unknown]
  - Pain [Unknown]
